FAERS Safety Report 6510618-8 (Version None)
Quarter: 2009Q4

REPORT INFORMATION
  Report Type: 
  Country: None (occurrence: None)
  Receive Date: 20091222
  Receipt Date: 20090105
  Transmission Date: 20100525
  Serious: No
  Sender: FDA-Public Use
  Company Number: US-ASTRAZENECA-2009UW00312

PATIENT
  Sex: Female

DRUGS (5)
  1. CRESTOR [Suspect]
     Indication: HYPERCHOLESTEROLAEMIA
     Dosage: 10 MG
     Route: 048
     Dates: start: 20080901
  2. ASPIRIN [Concomitant]
  3. PLAVIX [Concomitant]
  4. ATACAND [Concomitant]
     Dosage: 8 MG
     Route: 048
  5. CARVEDILOL [Concomitant]

REACTIONS (1)
  - ALOPECIA [None]
